FAERS Safety Report 12370384 (Version 1)
Quarter: 2016Q2

REPORT INFORMATION
  Report Type: Spontaneous
  Country: US (occurrence: None)
  Receive Date: 20160513
  Receipt Date: 20160513
  Transmission Date: 20160815
  Serious: Yes (Other)
  Sender: FDA-Public Use
  Company Number: None

PATIENT
  Age: 64 Year
  Sex: Male
  Weight: 112.04 kg

DRUGS (1)
  1. ATORVASTATIN, 40 MG [Suspect]
     Active Substance: ATORVASTATIN
     Indication: CARDIOVASCULAR DISORDER
     Route: 048
     Dates: start: 20141107, end: 20141201

REACTIONS (1)
  - Gout [None]

NARRATIVE: CASE EVENT DATE: 20141201
